FAERS Safety Report 20779451 (Version 1)
Quarter: 2022Q2

REPORT INFORMATION
  Report Type: Spontaneous
  Country: US (occurrence: US)
  Receive Date: 20220503
  Receipt Date: 20220503
  Transmission Date: 20220720
  Serious: Yes (Other)
  Sender: FDA-Public Use
  Company Number: US-OTSUKA-2022_025434

PATIENT
  Age: 15 Year
  Sex: Female

DRUGS (2)
  1. ABILIFY MAINTENA [Suspect]
     Active Substance: ARIPIPRAZOLE
     Indication: Bipolar disorder
     Dosage: 300 MG, QM
     Route: 030
     Dates: start: 202202, end: 20220331
  2. ABILIFY MAINTENA [Suspect]
     Active Substance: ARIPIPRAZOLE
     Dosage: 400 MG, QM
     Route: 030
     Dates: start: 20220331, end: 20220427

REACTIONS (4)
  - Bipolar disorder [Unknown]
  - Akathisia [Unknown]
  - Product administered to patient of inappropriate age [Unknown]
  - Underdose [Unknown]

NARRATIVE: CASE EVENT DATE: 20220201
